FAERS Safety Report 9820271 (Version 1)
Quarter: 2013Q4

REPORT INFORMATION
  Report Type: Spontaneous
  Country: DE (occurrence: None)
  Receive Date: 20131024
  Receipt Date: 20131024
  Transmission Date: 20140711
  Serious: Yes (Hospitalization, Other)
  Sender: FDA-Public Use
  Company Number: E2B_00001199

PATIENT
  Age: 1 Day
  Sex: Male
  Weight: 3.25 kg

DRUGS (2)
  1. CITALOPRAM (UNKNOWN) (CITALOPRAM) [Suspect]
     Indication: DEPRESSION
     Dosage: 1 IN 1 D
     Dates: start: 20090101, end: 20090919
  2. QUETIAPINE (UNKNOWN) [Suspect]
     Indication: DEPRESSION
     Dosage: 1 IN 1 D
     Dates: start: 20090101, end: 20090919

REACTIONS (3)
  - Agitation neonatal [None]
  - Oxygen saturation decreased [None]
  - Neonatal respiratory distress syndrome [None]
